FAERS Safety Report 7608307-1 (Version None)
Quarter: 2011Q3

REPORT INFORMATION
  Report Type: 
  Country: None (occurrence: None)
  Receive Date: 20110714
  Receipt Date: 20110706
  Transmission Date: 20111222
  Serious: Yes (Disabling, Congenital Anomaly, Other)
  Sender: FDA-Public Use
  Company Number: DE-TEVA-289312GER

PATIENT
  Age: 0 Year
  Sex: Female
  Weight: 3.05 kg

DRUGS (1)
  1. CARBAMAZEPINE [Suspect]
     Dosage: 800 MILLIGRAM;
     Route: 064

REACTIONS (8)
  - CONDUCT DISORDER [None]
  - ENURESIS [None]
  - ASTIGMATISM [None]
  - NYSTAGMUS [None]
  - DYSMORPHISM [None]
  - MYOPIA [None]
  - EXPRESSIVE LANGUAGE DISORDER [None]
  - CEREBELLAR SYNDROME [None]
